FAERS Safety Report 14517929 (Version 15)
Quarter: 2021Q4

REPORT INFORMATION
  Report Type: Spontaneous
  Country: US (occurrence: US)
  Receive Date: 20180212
  Receipt Date: 20211004
  Transmission Date: 20220303
  Serious: Yes (Other)
  Sender: FDA-Public Use
  Company Number: US-PFIZER INC-2018057260

PATIENT
  Age: 57 Year
  Sex: Female
  Weight: 62 kg

DRUGS (7)
  1. IBRANCE [Suspect]
     Active Substance: PALBOCICLIB
     Indication: Breast cancer metastatic
     Dosage: 125 MG
     Route: 048
  2. IBRANCE [Suspect]
     Active Substance: PALBOCICLIB
     Dosage: 100 MG, CYCLIC (DAILY FOR 21 DAYS, 7 DAYS OFF)
     Route: 048
     Dates: start: 201711
  3. IBRANCE [Suspect]
     Active Substance: PALBOCICLIB
     Dosage: 75 MG
  4. XGEVA [Concomitant]
     Active Substance: DENOSUMAB
     Indication: Breast cancer metastatic
     Dosage: UNK, MONTHLY
     Dates: start: 201711
  5. FASLODEX [Concomitant]
     Active Substance: FULVESTRANT
     Indication: Breast cancer metastatic
     Dosage: UNK, MONTHLY
     Dates: start: 201711
  6. FASLODEX [Concomitant]
     Active Substance: FULVESTRANT
     Indication: Hormone receptor positive breast cancer
     Dosage: 250 MG, MONTHLY (ONE SHOT IN EACH BUTT CHEEK)
  7. MORPHINE SULFATE [Concomitant]
     Active Substance: MORPHINE SULFATE
     Indication: Metastases to spine
     Dosage: 15 MG, AS NEEDED (TAKES 1-2 EVERY 6 HOURS AS NEEDED)
     Route: 048
     Dates: start: 201711

REACTIONS (14)
  - Rheumatoid arthritis [Recovering/Resolving]
  - Muscular weakness [Unknown]
  - Epistaxis [Unknown]
  - Abdominal pain upper [Unknown]
  - Back pain [Unknown]
  - Night sweats [Not Recovered/Not Resolved]
  - Feeling cold [Unknown]
  - Physical disability [Unknown]
  - Bone lesion [Unknown]
  - Sinusitis [Recovered/Resolved]
  - Malaise [Unknown]
  - Loss of personal independence in daily activities [Unknown]
  - Fatigue [Unknown]
  - Immune system disorder [Unknown]

NARRATIVE: CASE EVENT DATE: 20180201
